FAERS Safety Report 10608111 (Version 2)
Quarter: 2014Q4

REPORT INFORMATION
  Report Type: Report from Study
  Country: DE (occurrence: DE)
  Receive Date: 20141125
  Receipt Date: 20141125
  Transmission Date: 20150529
  Serious: Yes (Life-Threatening, Hospitalization)
  Sender: FDA-Public Use
  Company Number: DE-SA-2014SA033297

PATIENT
  Age: 47 Year
  Sex: Male

DRUGS (2)
  1. AUBAGIO [Suspect]
     Active Substance: TERIFLUNOMIDE
     Indication: MULTIPLE SCLEROSIS
     Dosage: STRENGTH: 14MG
     Route: 048
     Dates: start: 201311
  2. AUBAGIO [Suspect]
     Active Substance: TERIFLUNOMIDE
     Indication: MULTIPLE SCLEROSIS
     Dosage: STRENGTH: 14MG
     Route: 048

REACTIONS (6)
  - Multiple sclerosis [Recovered/Resolved]
  - Constipation [Not Recovered/Not Resolved]
  - Paraesthesia [Recovered/Resolved]
  - Drug dose omission [Unknown]
  - Myocardial infarction [Unknown]
  - Diarrhoea [Not Recovered/Not Resolved]

NARRATIVE: CASE EVENT DATE: 201402
